FAERS Safety Report 9031932 (Version 1)
Quarter: 2013Q1

REPORT INFORMATION
  Report Type: Spontaneous
  Country: CA (occurrence: CA)
  Receive Date: 20130125
  Receipt Date: 20130125
  Transmission Date: 20140127
  Serious: Yes (Other)
  Sender: FDA-Public Use
  Company Number: CA-PFIZER INC-2013028298

PATIENT
  Age: 43 Year
  Sex: Female

DRUGS (1)
  1. RELPAX [Suspect]

REACTIONS (1)
  - Colitis [Unknown]
